FAERS Safety Report 6693001-4 (Version None)
Quarter: 2010Q2

REPORT INFORMATION
  Report Type: 
  Country: None (occurrence: None)
  Receive Date: 20100422
  Receipt Date: 20100408
  Transmission Date: 20101027
  Serious: Yes (Hospitalization)
  Sender: FDA-Public Use
  Company Number: DE-GENENTECH-299560

PATIENT
  Sex: Female
  Weight: 70 kg

DRUGS (9)
  1. RITUXIMAB [Suspect]
     Indication: DIFFUSE LARGE B-CELL LYMPHOMA
     Dosage: 630 MG, X1
     Route: 042
     Dates: start: 20100310
  2. CYCLOPHOSPHAMIDE [Suspect]
     Indication: DIFFUSE LARGE B-CELL LYMPHOMA
     Dosage: 1250 MG, X1
     Route: 042
     Dates: start: 20100310, end: 20100311
  3. DOXORUBICIN HCL [Suspect]
     Indication: DIFFUSE LARGE B-CELL LYMPHOMA
     Dosage: 85 MG, X1
     Route: 042
     Dates: start: 20100310
  4. VINCRISTINE [Suspect]
     Indication: DIFFUSE LARGE B-CELL LYMPHOMA
     Dosage: 2 MG, X1
     Route: 042
     Dates: start: 20100310
  5. PREDNISONE [Suspect]
     Indication: DIFFUSE LARGE B-CELL LYMPHOMA
     Dosage: 50 MG, X1
     Route: 048
     Dates: start: 20100310
  6. LISINOPRIL [Concomitant]
     Indication: HYPERTENSION
     Dosage: 1 UNK, QD
  7. HYDROCHLOROTHIAZIDE [Concomitant]
     Indication: HYPERTENSION
     Dosage: UNK
  8. PANTOZOL [Concomitant]
     Indication: DRUG USE FOR UNKNOWN INDICATION
     Dosage: 1 UNK, QD
  9. KEPINOL FORTE [Concomitant]
     Indication: DRUG USE FOR UNKNOWN INDICATION
     Dosage: UNK

REACTIONS (9)
  - ANAEMIA [None]
  - DEHYDRATION [None]
  - DISTURBANCE IN ATTENTION [None]
  - FALL [None]
  - FEBRILE NEUTROPENIA [None]
  - HYPOTENSION [None]
  - INFUSION RELATED REACTION [None]
  - MUCOSAL INFLAMMATION [None]
  - SYNCOPE [None]
